FAERS Safety Report 7225807-7 (Version None)
Quarter: 2011Q1

REPORT INFORMATION
  Report Type: 
  Country: None (occurrence: None)
  Receive Date: 20110113
  Receipt Date: 20110110
  Transmission Date: 20110831
  Serious: Yes (Other)
  Sender: FDA-Public Use
  Company Number: GB-PFIZER INC-2008057888

PATIENT
  Age: 50 Year
  Sex: Female

DRUGS (5)
  1. DOMPERIDONE [Concomitant]
  2. EPIRUBICIN HYDROCHLORIDE [Suspect]
     Indication: BREAST CANCER
  3. NEULASTA [Suspect]
     Indication: BREAST CANCER
  4. LEVOTHYROXINE SODIUM [Suspect]
  5. DEXAMETHASONE [Concomitant]

REACTIONS (9)
  - BURNING SENSATION [None]
  - HEART RATE INCREASED [None]
  - SWELLING FACE [None]
  - DRUG INTERACTION [None]
  - EMOTIONAL DISTRESS [None]
  - AGITATION [None]
  - BLOOD THYROID STIMULATING HORMONE INCREASED [None]
  - FORMICATION [None]
  - INSOMNIA [None]
